FAERS Safety Report 20826289 (Version 2)
Quarter: 2024Q3

REPORT INFORMATION
  Report Type: Spontaneous
  Country: ZA (occurrence: ZA)
  Receive Date: 20220513
  Receipt Date: 20240711
  Transmission Date: 20241017
  Serious: No
  Sender: ASTELLAS
  Company Number: ZA-ASTELLAS-2022US017343

PATIENT
  Sex: Male

DRUGS (2)
  1. TACROLIMUS [Suspect]
     Active Substance: TACROLIMUS
     Indication: Product used for unknown indication
     Route: 065
  2. TACROLIMUS [Suspect]
     Active Substance: TACROLIMUS
     Dosage: UNK UNK, UNKNOWN FREQ. (DOSE DECREASED)
     Route: 065

REACTIONS (2)
  - Acidosis [Not Recovered/Not Resolved]
  - Immunosuppressant drug level increased [Not Recovered/Not Resolved]
